FAERS Safety Report 4432520-8 (Version None)
Quarter: 2004Q3

REPORT INFORMATION
  Report Type: 
  Country: None (occurrence: None)
  Receive Date: 20040820
  Receipt Date: 20040805
  Transmission Date: 20050211
  Serious: Yes (Hospitalization)
  Sender: FDA-Public Use
  Company Number: 208462

PATIENT
  Age: 67 Year
  Sex: Male

DRUGS (3)
  1. BEVACIZUMAB (BEVACIZUMAB) PWDR + SOLVENT, INFUSION SOLN, 100 MG [Suspect]
     Indication: COLORECTAL CANCER
     Dosage: SEE IMAGE
     Route: 042
     Dates: start: 20040315, end: 20040610
  2. BEVACIZUMAB (BEVACIZUMAB) PWDR + SOLVENT, INFUSION SOLN, 100 MG [Suspect]
     Indication: COLORECTAL CANCER
     Dosage: SEE IMAGE
     Route: 042
     Dates: start: 20040315, end: 20040610
  3. CETUXIMAB (CETUXIMAB) [Suspect]
     Indication: COLORECTAL CANCER
     Dosage: 400 MG/M2, INTRAVENOUS
     Route: 042
     Dates: start: 20040315, end: 20040610

REACTIONS (13)
  - ANAEMIA [None]
  - AORTIC VALVE INCOMPETENCE [None]
  - BLOOD CULTURE POSITIVE [None]
  - BLOOD PRESSURE SYSTOLIC DECREASED [None]
  - CULTURE URINE POSITIVE [None]
  - ENTEROCOCCAL INFECTION [None]
  - GENERAL PHYSICAL HEALTH DETERIORATION [None]
  - HAEMODIALYSIS [None]
  - PULMONARY ARTERIAL PRESSURE INCREASED [None]
  - PULMONARY OEDEMA [None]
  - RENAL FAILURE ACUTE [None]
  - RESPIRATORY FAILURE [None]
  - TRICUSPID VALVE INCOMPETENCE [None]
